FAERS Safety Report 5861126-9 (Version None)
Quarter: 2008Q3

REPORT INFORMATION
  Report Type: 
  Country: None (occurrence: None)
  Receive Date: 20080827
  Receipt Date: 20080226
  Transmission Date: 20090109
  Serious: No
  Sender: FDA-Public Use
  Company Number: US-ABBOTT-08P-163-0439754-00

PATIENT
  Age: 65 Year
  Sex: Male
  Weight: 74.91 kg

DRUGS (12)
  1. NIASPAN [Suspect]
     Indication: CARDIAC DISORDER
     Route: 048
     Dates: start: 20000101
  2. NIASPAN [Suspect]
     Indication: CARDIAC DISORDER
     Route: 048
  3. NIASPAN [Suspect]
     Dates: start: 20080101
  4. NIASPAN [Suspect]
     Indication: CARDIAC DISORDER
     Route: 048
     Dates: end: 20080101
  5. NIASPAN [Suspect]
     Indication: CARDIAC DISORDER
     Route: 048
     Dates: start: 20080101
  6. CLOPIDOGREL [Concomitant]
     Indication: DRUG USE FOR UNKNOWN INDICATION
  7. METOPROLOL SUCCINATE [Concomitant]
     Indication: DRUG USE FOR UNKNOWN INDICATION
  8. FOLIC ACID [Concomitant]
     Indication: DRUG USE FOR UNKNOWN INDICATION
  9. ASPIRIN [Concomitant]
     Indication: DRUG USE FOR UNKNOWN INDICATION
  10. IRBESARTAN [Concomitant]
     Indication: DRUG USE FOR UNKNOWN INDICATION
  11. EZETIMIBE [Concomitant]
     Indication: DRUG USE FOR UNKNOWN INDICATION
  12. CETIRIZINE HYDROCHLORIDE [Concomitant]
     Indication: DRUG USE FOR UNKNOWN INDICATION

REACTIONS (2)
  - FLUSHING [None]
  - URTICARIA [None]
